FAERS Safety Report 5106999-2 (Version None)
Quarter: 2006Q3

REPORT INFORMATION
  Report Type: 
  Country: None (occurrence: None)
  Receive Date: 20060913
  Receipt Date: 20060824
  Transmission Date: 20061208
  Serious: Yes (Hospitalization)
  Sender: FDA-Public Use
  Company Number: US200607004307

PATIENT
  Age: 56 Year
  Sex: Female

DRUGS (1)
  1. HUMALOG [Suspect]
     Indication: DIABETES MELLITUS
     Dates: start: 20020101

REACTIONS (6)
  - BLOOD GLUCOSE INCREASED [None]
  - CORONARY ARTERY DISEASE [None]
  - MEMORY IMPAIRMENT [None]
  - PHARMACEUTICAL PRODUCT COMPLAINT [None]
  - STENT OCCLUSION [None]
  - VASCULAR GRAFT OCCLUSION [None]
